FAERS Safety Report 9230782 (Version 5)
Quarter: 2013Q4

REPORT INFORMATION
  Report Type: Report from Study
  Country: RU (occurrence: RU)
  Receive Date: 20130415
  Receipt Date: 20131022
  Transmission Date: 20140711
  Serious: Yes (Hospitalization)
  Sender: FDA-Public Use
  Company Number: RU-B.I. PHARMACEUTICALS,INC./RIDGEFIELD-2012-AP-00292AP

PATIENT
  Age: 57 Year
  Sex: Male
  Weight: 80 kg

DRUGS (7)
  1. TIOTROPIUM BROMIDE [Suspect]
     Indication: CHRONIC OBSTRUCTIVE PULMONARY DISEASE
     Dosage: 18 MCG
     Route: 055
     Dates: start: 20120125, end: 20120224
  2. TIOTROPIUM BROMIDE [Suspect]
     Dosage: 18 MCG
     Route: 055
     Dates: start: 20101014, end: 20120224
  3. SALMETEROL [Suspect]
     Indication: CHRONIC OBSTRUCTIVE PULMONARY DISEASE
     Dosage: 100 MCG
     Route: 055
     Dates: start: 20101014, end: 20120224
  4. DIOVAN [Concomitant]
     Indication: CORONARY ARTERY DISEASE
     Dosage: 160 MG
     Route: 048
     Dates: start: 20110419
  5. PREDUCTAL MV [Concomitant]
     Indication: CORONARY ARTERY DISEASE
     Dosage: 35 MG
     Route: 048
     Dates: start: 20110419
  6. VASILIP [Concomitant]
     Indication: CORONARY ARTERY DISEASE
     Dosage: 20 MG
     Route: 048
     Dates: start: 20110419
  7. VENTOLIN [Concomitant]
     Indication: CHRONIC OBSTRUCTIVE PULMONARY DISEASE
     Dosage: DAILY DOSE: PRN
     Route: 055
     Dates: start: 20101014

REACTIONS (2)
  - Renal neoplasm [Recovered/Resolved]
  - Prostatic adenoma [Not Recovered/Not Resolved]
